FAERS Safety Report 9461205 (Version 1)
Quarter: 2013Q3

REPORT INFORMATION
  Report Type: Spontaneous
  Country: US (occurrence: None)
  Receive Date: 20130814
  Receipt Date: 20130814
  Transmission Date: 20140515
  Serious: Yes (Hospitalization, Other)
  Sender: FDA-Public Use
  Company Number: None

PATIENT
  Age: 65 Year
  Sex: Female
  Weight: 74.84 kg

DRUGS (12)
  1. FOSAMAX [Suspect]
     Indication: OSTEOPENIA
     Dosage: 1 PILL  WEEKLY  BY MOUTH
     Route: 048
     Dates: start: 200311, end: 20121228
  2. ALENDRONATE SODIUM [Suspect]
  3. LIPITOR [Concomitant]
  4. SYNTHROID [Concomitant]
  5. OMEPRAZOLE [Concomitant]
  6. COZAAR [Concomitant]
  7. VITAMIN D [Concomitant]
  8. DILTIAZEM [Concomitant]
  9. CITRACAL WITH  D [Concomitant]
  10. VITAMIN D [Concomitant]
  11. ASA LOW DOSE [Concomitant]
  12. FISH OIL [Concomitant]

REACTIONS (2)
  - Femur fracture [None]
  - Femur fracture [None]
